FAERS Safety Report 18024792 (Version 1)
Quarter: 2020Q3

REPORT INFORMATION
  Report Type: Spontaneous
  Country: US (occurrence: US)
  Receive Date: 20200714
  Receipt Date: 20200714
  Transmission Date: 20201103
  Serious: Yes (Hospitalization)
  Sender: FDA-Public Use
  Company Number: None

PATIENT
  Age: 64 Year
  Sex: Male
  Weight: 107.5 kg

DRUGS (1)
  1. DABIGATRAN (DABIGATRAN ETEXILATE 150MG CAP, ORAL) [Suspect]
     Active Substance: DABIGATRAN
     Indication: ATRIAL FIBRILLATION
     Route: 048
     Dates: start: 20181214, end: 20191123

REACTIONS (11)
  - International normalised ratio increased [None]
  - Haematemesis [None]
  - Nausea [None]
  - Shock haemorrhagic [None]
  - Blood potassium increased [None]
  - Melaena [None]
  - Anaemia [None]
  - Hyperkalaemia [None]
  - Acute kidney injury [None]
  - Vomiting [None]
  - Upper gastrointestinal haemorrhage [None]

NARRATIVE: CASE EVENT DATE: 20191124
